FAERS Safety Report 9468455 (Version 2)
Quarter: 2013Q3

REPORT INFORMATION
  Report Type: Report from Study
  Country: US (occurrence: US)
  Receive Date: 20130821
  Receipt Date: 20130829
  Transmission Date: 20140515
  Serious: Yes (Other)
  Sender: FDA-Public Use
  Company Number: US-ACTELION-A-NJ2013-87245

PATIENT
  Age: 76 Year
  Sex: Female

DRUGS (16)
  1. TRACLEER [Suspect]
     Indication: PULMONARY ARTERIAL HYPERTENSION
     Dosage: 62.5 MG, BID
     Route: 048
     Dates: start: 2006
  2. ZOCOR [Concomitant]
     Dosage: 20 MG, QD
     Dates: start: 2008
  3. ACTONEL [Concomitant]
     Dosage: 150 MG, MONTHLY
     Dates: start: 2008
  4. RESTASIS [Concomitant]
     Dosage: 1 DROP BOTH EYES BID
     Dates: start: 2008
  5. FUROSEMIDE [Concomitant]
     Dosage: 40 MG, PRN
     Dates: start: 2008
  6. DIGOXIN [Concomitant]
     Dosage: 25 MG, QD
     Dates: start: 2008
  7. TOPROL [Concomitant]
     Dosage: 50 MG, QD
     Dates: start: 2008
  8. VALIUM [Concomitant]
     Dosage: 5 MG, PRN
     Dates: start: 2008
  9. COUMADIN [Concomitant]
     Dosage: 7.5 MG, QD
     Dates: start: 2008
  10. MILK OF MAGNESIA [Concomitant]
     Dosage: I TABLET DAILY
     Dates: start: 2008
  11. CALCIUM [Concomitant]
     Dosage: 600 MG, BID
     Dates: start: 2008
  12. MULTIVITAMIN [Concomitant]
     Dosage: 1 TABLET DAILY
     Dates: start: 2008
  13. FEOSOL [Concomitant]
     Dosage: 45 MG, QD
     Dates: start: 2008
  14. FISH OIL [Concomitant]
     Dosage: 1200 MG, QD
     Dates: start: 2008
  15. VITAMIN C [Concomitant]
     Dosage: 1000 MG, QD
     Dates: start: 2008
  16. VITAMIN B12 [Concomitant]
     Dosage: 1000 MG, QD
     Dates: start: 2008

REACTIONS (2)
  - Basal cell carcinoma [Recovered/Resolved]
  - Skin neoplasm excision [Recovered/Resolved]
